FAERS Safety Report 6641088-7 (Version None)
Quarter: 2010Q1

REPORT INFORMATION
  Report Type: 
  Country: None (occurrence: None)
  Receive Date: 20100318
  Receipt Date: 20090219
  Transmission Date: 20100710
  Serious: No
  Sender: FDA-Public Use
  Company Number: US-ASTRAZENECA-2009UW04710

PATIENT
  Age: 71 Year
  Sex: Female

DRUGS (8)
  1. LISINOPRIL [Suspect]
     Dosage: UNKNOWN
     Route: 048
  2. PROTONIX [Concomitant]
  3. ATENOLOL [Concomitant]
  4. AMBIEN [Concomitant]
     Indication: SLEEP DISORDER
  5. FLAX SEED [Concomitant]
  6. GINGER [Concomitant]
  7. GARLIC [Concomitant]
  8. PAPAYA [Concomitant]

REACTIONS (3)
  - COUGH [None]
  - DYSPHONIA [None]
  - PAIN IN EXTREMITY [None]
